FAERS Safety Report 19936765 (Version 4)
Quarter: 2021Q4

REPORT INFORMATION
  Report Type: Report from Study
  Country: IL (occurrence: IL)
  Receive Date: 20211009
  Receipt Date: 20211115
  Transmission Date: 20220303
  Serious: Yes (Death, Other)
  Sender: FDA-Public Use
  Company Number: NVSC2021IL226068

PATIENT
  Age: 80 Year
  Sex: Female
  Weight: 61 kg

DRUGS (4)
  1. TRAMETINIB [Suspect]
     Active Substance: TRAMETINIB
     Indication: Myxofibrosarcoma
     Dosage: 2 MG
     Route: 048
     Dates: start: 20210801, end: 20210916
  2. ADRIAMYCIN [Suspect]
     Active Substance: DOXORUBICIN HYDROCHLORIDE
     Indication: Myxofibrosarcoma
     Dosage: UNK
     Route: 065
     Dates: start: 202104
  3. GEMZAR [Suspect]
     Active Substance: GEMCITABINE HYDROCHLORIDE
     Indication: Myxofibrosarcoma
     Dosage: UNK
     Route: 065
     Dates: start: 202104
  4. TAXOTERE [Suspect]
     Active Substance: DOCETAXEL
     Indication: Myxofibrosarcoma
     Dosage: UNK
     Route: 065
     Dates: start: 202104

REACTIONS (4)
  - Death [Fatal]
  - Respiratory depression [Unknown]
  - Myxofibrosarcoma [Unknown]
  - Malignant neoplasm progression [Unknown]

NARRATIVE: CASE EVENT DATE: 20210916
